FAERS Safety Report 5831296-7 (Version None)
Quarter: 2008Q3

REPORT INFORMATION
  Report Type: 
  Country: None (occurrence: None)
  Receive Date: 20080801
  Receipt Date: 20080725
  Transmission Date: 20090109
  Serious: No
  Sender: FDA-Public Use
  Company Number: US-BOEHRINGER INGELHEIM GMBH, GERMANY-2008-BP-11774BP

PATIENT
  Sex: Male

DRUGS (8)
  1. SPIRIVA [Suspect]
     Indication: CHRONIC OBSTRUCTIVE PULMONARY DISEASE
     Route: 055
     Dates: start: 20080602
  2. OXYDANTIN [Concomitant]
     Indication: URINARY INCONTINENCE
     Route: 048
  3. VALPROATE SODIUM [Concomitant]
     Indication: BIPOLAR DISORDER
     Route: 048
  4. ZOLPIDEM [Concomitant]
     Indication: INSOMNIA
     Route: 048
     Dates: start: 20080201
  5. CALCIUM [Concomitant]
     Indication: OSTEOPOROSIS
     Route: 048
  6. METFORMIIN [Concomitant]
     Indication: DIABETES MELLITUS
     Route: 048
  7. STOOL SOFTENER [Concomitant]
     Indication: CONSTIPATION
     Route: 048
  8. INHALERS [Concomitant]
     Indication: CHRONIC OBSTRUCTIVE PULMONARY DISEASE
     Route: 055

REACTIONS (1)
  - CONSTIPATION [None]
